FAERS Safety Report 18951870 (Version 1)
Quarter: 2021Q1

REPORT INFORMATION
  Report Type: Spontaneous
  Country: US (occurrence: US)
  Receive Date: 20210301
  Receipt Date: 20210301
  Transmission Date: 20210420
  Serious: No
  Sender: FDA-Public Use
  Company Number: US-TEVA-2021-US-1885889

PATIENT

DRUGS (1)
  1. EPIPEN [Suspect]
     Active Substance: EPINEPHRINE
     Route: 065

REACTIONS (4)
  - Needle issue [Unknown]
  - Contusion [Unknown]
  - Injection site bruising [Unknown]
  - Product design issue [Unknown]
